FAERS Safety Report 9443583 (Version 9)
Quarter: 2016Q4

REPORT INFORMATION
  Report Type: Report from Study
  Country: GB (occurrence: GB)
  Receive Date: 20130806
  Receipt Date: 20161221
  Transmission Date: 20170207
  Serious: Yes (Death, Hospitalization, Other)
  Sender: FDA-Public Use
  Company Number: GB-ALEXION PHARMACEUTICALS INC.-A201301769

PATIENT
  Age: 24 Year
  Sex: Male

DRUGS (13)
  1. ECULIZUMAB [Suspect]
     Active Substance: ECULIZUMAB
     Indication: HAEMOLYTIC URAEMIC SYNDROME
     Dosage: 900 MG, QD
     Route: 042
     Dates: start: 20130620, end: 20130620
  2. ECULIZUMAB [Suspect]
     Active Substance: ECULIZUMAB
     Dosage: 900 MG, QD
     Route: 042
     Dates: start: 20130628, end: 20130628
  3. ERYTHROPOETIN [Concomitant]
     Active Substance: ERYTHROPOIETIN
     Indication: NEPHROGENIC ANAEMIA
     Dosage: UNK
     Route: 058
     Dates: start: 199612
  4. IRON [Concomitant]
     Active Substance: IRON
     Indication: ANAEMIA
     Dosage: UNK
     Route: 042
     Dates: start: 1990
  5. ECULIZUMAB [Suspect]
     Active Substance: ECULIZUMAB
     Dosage: 900 MG, QD
     Route: 042
     Dates: start: 20130621, end: 20130621
  6. ECULIZUMAB [Suspect]
     Active Substance: ECULIZUMAB
     Dosage: UNK
     Route: 042
     Dates: start: 20130701
  7. IRBESARTAN. [Concomitant]
     Active Substance: IRBESARTAN
     Indication: HYPERTENSION
     Dosage: 150 MG, BID
     Route: 065
  8. FLUCONAZOLE. [Concomitant]
     Active Substance: FLUCONAZOLE
     Indication: PROPHYLAXIS
     Route: 065
  9. ALFACALCIDOL [Concomitant]
     Active Substance: ALFACALCIDOL
     Indication: PROPHYLAXIS
     Dosage: UNK
     Route: 048
     Dates: start: 1992
  10. NIFEDIPINE LA [Concomitant]
     Indication: HYPERTENSION
     Dosage: 20 MG, QD
     Route: 065
  11. FOLIC ACID. [Concomitant]
     Active Substance: FOLIC ACID
     Indication: ANAEMIA
     Dosage: UNK
     Route: 048
     Dates: start: 1997
  12. RANITIDINE. [Concomitant]
     Active Substance: RANITIDINE
     Indication: PROPHYLAXIS
     Dosage: UNK
     Route: 048
     Dates: start: 200908
  13. PHOSEX [Concomitant]
     Indication: BLOOD PHOSPHORUS
     Dosage: UNK
     Route: 048
     Dates: start: 200701

REACTIONS (3)
  - Aspergillus infection [Fatal]
  - Bacterial infection [Unknown]
  - Ruptured cerebral aneurysm [Fatal]

NARRATIVE: CASE EVENT DATE: 20130715
